FAERS Safety Report 5201933-9 (Version None)
Quarter: 2007Q1

REPORT INFORMATION
  Report Type: 
  Country: None (occurrence: None)
  Receive Date: 20070103
  Receipt Date: 20061222
  Transmission Date: 20070707
  Serious: Yes (Hospitalization, Other)
  Sender: FDA-Public Use
  Company Number: DEWYE796311DEC06

PATIENT
  Age: 35 Year
  Sex: Female

DRUGS (4)
  1. VENLAFAXINE HCL EXTENDED-RELEASE [Suspect]
     Indication: DEPRESSION
     Dosage: 75 MG 3X PER 1 DAY, ORAL
     Route: 048
     Dates: start: 20061114, end: 20061201
  2. AEROMUC (ACETYLCYSTEINE, , 0) [Suspect]
     Dosage: 600 MG 1X PER 1 DAY, ORAL
     Route: 048
  3. CABASERIL (CABERGOLINE, , 0) [Suspect]
     Dosage: 5 MG 1X PER 1 DAY, ORAL
     Route: 048
  4. ZOPICLONE (ZOPICLONE, , 0) [Suspect]
     Dosage: 2 TABLETS PER DAY, ORAL
     Route: 048

REACTIONS (2)
  - AGITATION [None]
  - ANTIDEPRESSANT DRUG LEVEL INCREASED [None]
